FAERS Safety Report 15622276 (Version 1)
Quarter: 2018Q4

REPORT INFORMATION
  Report Type: Spontaneous
  Country: CN (occurrence: CN)
  Receive Date: 20181115
  Receipt Date: 20181115
  Transmission Date: 20190205
  Serious: Yes (Other)
  Sender: FDA-Public Use
  Company Number: CN-PFIZER INC-2018465913

PATIENT

DRUGS (1)
  1. SUTENT [Suspect]
     Active Substance: SUNITINIB MALATE
     Route: 048

REACTIONS (5)
  - Vision blurred [Unknown]
  - Retinal haemorrhage [Unknown]
  - Headache [Unknown]
  - Platelet count decreased [Unknown]
  - Nausea [Unknown]
